FAERS Safety Report 20986330 (Version 3)
Quarter: 2022Q3

REPORT INFORMATION
  Report Type: Report from Study
  Country: CZ (occurrence: CZ)
  Receive Date: 20220621
  Receipt Date: 20220729
  Transmission Date: 20221027
  Serious: Yes (Death, Hospitalization)
  Sender: FDA-Public Use
  Company Number: CZ-BAXTER-2022BAX011190

PATIENT
  Age: 78 Year
  Sex: Female
  Weight: 55 kg

DRUGS (30)
  1. PREDNISONE [Suspect]
     Active Substance: PREDNISONE
     Indication: Diffuse large B-cell lymphoma stage IV
     Dosage: REGIMEN#6
     Route: 048
     Dates: start: 20210727, end: 20210730
  2. PREDNISONE [Suspect]
     Active Substance: PREDNISONE
     Dosage: REGIMEN#1
     Route: 048
     Dates: start: 20210421, end: 20210424
  3. PREDNISONE [Suspect]
     Active Substance: PREDNISONE
     Dosage: REGIMEN#2
     Route: 048
     Dates: start: 20210427, end: 20210429
  4. PREDNISONE [Suspect]
     Active Substance: PREDNISONE
     Dosage: REGIMEN#7, MOST RECENT DOSE ADMINISTERED ON 20/AUG/2021
     Route: 048
     Dates: start: 20210817
  5. PREDNISONE [Suspect]
     Active Substance: PREDNISONE
     Dosage: REGIMEN#3
     Route: 048
     Dates: start: 20210503, end: 20210503
  6. PREDNISONE [Suspect]
     Active Substance: PREDNISONE
     Dosage: REGIMEN#5
     Route: 048
     Dates: start: 20210615
  7. PREDNISONE [Suspect]
     Active Substance: PREDNISONE
     Dosage: REGIMEN#4
     Route: 048
     Dates: start: 20210511, end: 20210514
  8. VINCRISTINE [Suspect]
     Active Substance: VINCRISTINE
     Indication: Diffuse large B-cell lymphoma stage IV
     Dosage: REGIMEN#1, MOST RECENT DOSE ADMINISTERED ON 16/AUG/2021
     Route: 042
     Dates: start: 20210420, end: 20210816
  9. DOXORUBICIN [Suspect]
     Active Substance: DOXORUBICIN
     Indication: Diffuse large B-cell lymphoma stage IV
     Dosage: 50 MG/M2, EVERY 3 WK REGIMEN#1, MOST RECENT DOSE ADMINISTERED ON 16/AUG/2021
     Route: 042
     Dates: start: 20210420
  10. METHYLPREDNISOLONE [Suspect]
     Active Substance: METHYLPREDNISOLONE
     Indication: Diffuse large B-cell lymphoma stage IV
     Dosage: REGIMEN#2
     Route: 042
     Dates: start: 20210614, end: 20210614
  11. METHYLPREDNISOLONE [Suspect]
     Active Substance: METHYLPREDNISOLONE
     Dosage: REGIMEN#3
     Route: 042
     Dates: start: 20210726, end: 20210726
  12. METHYLPREDNISOLONE [Suspect]
     Active Substance: METHYLPREDNISOLONE
     Dosage: REGIMEN#1
     Route: 042
     Dates: start: 20210420, end: 20210420
  13. METHYLPREDNISOLONE [Suspect]
     Active Substance: METHYLPREDNISOLONE
     Dosage: REGIMEN#4 MOST RECENT DOSE ADMINISTERED ON 16/AUG/2021
     Route: 042
     Dates: start: 20210816
  14. CYCLOPHOSPHAMIDE [Suspect]
     Active Substance: CYCLOPHOSPHAMIDE
     Indication: Diffuse large B-cell lymphoma stage IV
     Dosage: REGIMEN#1 MOST RECENT DOSE ADMINISTERED ON 16/AUG/2021
     Route: 042
     Dates: start: 20210420
  15. RITUXIMAB [Suspect]
     Active Substance: RITUXIMAB
     Indication: Diffuse large B-cell lymphoma stage IV
     Dosage: REGIMEN #1, MOST RECENT DOSE ADMINISTERED ON 16/AUG/2021
     Route: 042
     Dates: start: 20210420
  16. POTASSIUM CHLORIDE [Concomitant]
     Active Substance: POTASSIUM CHLORIDE
     Indication: Product used for unknown indication
     Dosage: UNK
     Route: 065
     Dates: start: 20220413
  17. NOVALGIN (CZECH REPUBLIC) [Concomitant]
     Indication: Product used for unknown indication
     Dosage: UNK
     Route: 065
     Dates: start: 20210414
  18. BISULEPIN [Concomitant]
     Active Substance: BISULEPIN
     Indication: Premedication
     Dosage: 2 MG
     Route: 048
     Dates: start: 20220228, end: 20220228
  19. NEUROL (CZECH REPUBLIC) [Concomitant]
     Indication: Product used for unknown indication
     Dosage: UNK
     Route: 065
     Dates: start: 20210414
  20. AMLODIPINE BESYLATE [Concomitant]
     Active Substance: AMLODIPINE BESYLATE
     Indication: Product used for unknown indication
     Dosage: UNK
     Route: 065
     Dates: start: 202006
  21. PREDNISONE [Concomitant]
     Active Substance: PREDNISONE
     Indication: Prophylaxis
     Route: 048
     Dates: start: 20210503, end: 20210503
  22. PREDNISONE [Concomitant]
     Active Substance: PREDNISONE
     Route: 048
     Dates: start: 20210427, end: 20210429
  23. PREDNISONE [Concomitant]
     Active Substance: PREDNISONE
     Route: 048
     Dates: start: 20220228, end: 20220228
  24. COTRIMOXAZOLE [Concomitant]
     Active Substance: SULFAMETHOXAZOLE\TRIMETHOPRIM
     Indication: Product used for unknown indication
     Dosage: UNK
     Route: 065
     Dates: start: 20210414
  25. LANSOPRAZOLE [Concomitant]
     Active Substance: LANSOPRAZOLE
     Indication: Product used for unknown indication
     Dosage: UNK
     Route: 065
     Dates: start: 2020
  26. VALACYCLOVIR HYDROCHLORIDE [Concomitant]
     Active Substance: VALACYCLOVIR HYDROCHLORIDE
     Indication: Product used for unknown indication
     Dosage: UNK
     Route: 065
     Dates: start: 20210414
  27. GRANISETRON HYDROCHLORIDE [Concomitant]
     Active Substance: GRANISETRON HYDROCHLORIDE
     Indication: Product used for unknown indication
     Dosage: UNK
     Route: 065
     Dates: start: 20210420
  28. PARALEN (CZECH REPUBLIC) [Concomitant]
     Indication: Premedication
     Dosage: 1000 MG
     Route: 048
     Dates: start: 20220228, end: 20220228
  29. ZALDIAR [Concomitant]
     Active Substance: ACETAMINOPHEN\TRAMADOL HYDROCHLORIDE
     Indication: Product used for unknown indication
     Dosage: UNK
     Route: 065
     Dates: start: 2018
  30. ALLOPURINOL [Concomitant]
     Active Substance: ALLOPURINOL
     Indication: Product used for unknown indication
     Dosage: UNK
     Route: 065
     Dates: start: 20210414

REACTIONS (1)
  - COVID-19 pneumonia [Fatal]

NARRATIVE: CASE EVENT DATE: 20220311
